FAERS Safety Report 19772434 (Version 1)
Quarter: 2021Q3

REPORT INFORMATION
  Report Type: Spontaneous
  Country: US (occurrence: US)
  Receive Date: 20210830
  Receipt Date: 20210830
  Transmission Date: 20211014
  Serious: Yes (Death)
  Sender: FDA-Public Use
  Company Number: None

PATIENT
  Sex: Male

DRUGS (1)
  1. ENOXAPARIN SOD SYRINGE 120MG/0.8ML WINTHROP, US [Suspect]
     Active Substance: ENOXAPARIN SODIUM
     Indication: RENAL CANCER
     Route: 058
     Dates: start: 20210318, end: 20210517

REACTIONS (1)
  - Death [None]
